FAERS Safety Report 25998279 (Version 1)
Quarter: 2025Q4

REPORT INFORMATION
  Report Type: Spontaneous
  Country: CN (occurrence: CN)
  Receive Date: 20251105
  Receipt Date: 20251105
  Transmission Date: 20260118
  Serious: Yes (Death)
  Sender: QILU PHARMACEUTICAL
  Company Number: CN-QILU PHARMACEUTICAL CO.LTD.-QLU-000281-2025

PATIENT
  Age: 47 Year
  Sex: Female

DRUGS (3)
  1. CISPLATIN [Suspect]
     Active Substance: CISPLATIN
     Indication: Lung adenocarcinoma stage IV
     Dosage: 35 MG FROM DAY 1 TO DAY 3 FOR 4 CYCLES
     Route: 065
     Dates: start: 2024, end: 2024
  2. PEMETREXED [Suspect]
     Active Substance: PEMETREXED
     Indication: Lung adenocarcinoma stage IV
     Dosage: 800 MG ON DAY 1 FOR 4 CYCLES
     Route: 065
     Dates: start: 2024, end: 2024
  3. BEVACIZUMAB [Suspect]
     Active Substance: BEVACIZUMAB
     Indication: Lung adenocarcinoma stage IV
     Dosage: 400 MG ON DAY 1 FOR 4 CYCLES
     Route: 065
     Dates: start: 2024, end: 2024

REACTIONS (2)
  - Vascular pseudoaneurysm [Fatal]
  - Drug effective for unapproved indication [Unknown]

NARRATIVE: CASE EVENT DATE: 20240214
